FAERS Safety Report 9509660 (Version 1)
Quarter: 2013Q1

REPORT INFORMATION
  Report Type: Spontaneous
  Country: US (occurrence: None)
  Receive Date: 20130305
  Receipt Date: 20130305
  Transmission Date: 20140127
  Serious: Yes (Other)
  Sender: FDA-Public Use
  Company Number: 163-21880-120582251

PATIENT
  Age: 79 Year
  Sex: Male

DRUGS (17)
  1. REVLIMID (LENALIDOMIDE) (CAPSULES) [Suspect]
     Indication: PLASMA CELL MYELOMA
     Dosage: 15 MG, 21 IN 28 D, PO
     Route: 048
     Dates: start: 201201, end: 201205
  2. DEXAMETHASONE (DEXAMETHASONE) (UNKNOWN) [Concomitant]
  3. ZOMETA (ZOLDEDRONIC ACID) (UNKNOWN) [Concomitant]
  4. DOXAZOSIN (DOXAZOSIN) (UNKNOWN) [Concomitant]
  5. FUROSEMIDE (FUROSEMIDE) (UNKNOWN) [Concomitant]
  6. ARICET (DONEPEZIL HYDROCHLORIDE) (UNKNOWN) [Concomitant]
  7. OMEGA 3 FISH OIL (FISH OIL) (UNKNOWN) [Concomitant]
  8. VITAMIN D (ERGOCALCIFEROL) (UNKNOWN) [Concomitant]
  9. LEVOTHYROXINE (LEVOTHYROXINE) (UNKNOWN) [Concomitant]
  10. NAMENDA (MEMANTINE HYDROCHLORIDE) (UNKNOWN) [Concomitant]
  11. TRAZODONE (TRAZODONE) (UNKNOWN) (TRAZODONE) [Concomitant]
  12. ENLAPRIL (ENALAPRIL) (UNKNOWN) [Concomitant]
  13. POTASSIUM (POTASSIUM) (UNKNOWN) [Concomitant]
  14. NIACIN (NICOTINIC ACID) (UNKNOWN) [Concomitant]
  15. TRAMADOL (TRAMADOL) (UNKNOWN) [Concomitant]
  16. TYLENOL ARTHRITIS (PARACETAMOL) (UNKNOWN) [Concomitant]
  17. CALCIUM (CALCIUM) (UNKNOWN) [Concomitant]

REACTIONS (3)
  - Pancytopenia [None]
  - Sinusitis [None]
  - Pain in extremity [None]
